FAERS Safety Report 10360782 (Version 3)
Quarter: 2014Q3

REPORT INFORMATION
  Report Type: Spontaneous
  Country: HU (occurrence: HU)
  Receive Date: 20140804
  Receipt Date: 20140819
  Transmission Date: 20150326
  Serious: Yes (Other)
  Sender: FDA-Public Use
  Company Number: HU-PFIZER INC-2014201384

PATIENT
  Age: 49 Year
  Sex: Male
  Weight: 82 kg

DRUGS (7)
  1. SUTENT [Suspect]
     Active Substance: SUNITINIB MALATE
     Dosage: 37.5 MG, 1X/DAY (28 DAY USAGE, TWO WEEKS BREAK)
     Route: 048
     Dates: start: 201111, end: 201311
  2. ACCUPRO [Concomitant]
     Active Substance: QUINAPRIL HYDROCHLORIDE
     Indication: HYPERTENSION
     Dosage: 20 MG, UNK
     Route: 048
  3. SUTENT [Suspect]
     Active Substance: SUNITINIB MALATE
     Dosage: 25 MG AND 37.5 MG TABLET ON ALTERNATE DAYS
     Route: 048
     Dates: start: 201311, end: 20140217
  4. NEBIVOLOL [Concomitant]
     Active Substance: NEBIVOLOL
     Indication: HYPERTENSION
     Dosage: 1.25 MG
     Route: 048
     Dates: start: 2004
  5. SUTENT [Suspect]
     Active Substance: SUNITINIB MALATE
     Indication: METASTATIC RENAL CELL CARCINOMA
     Dosage: 50 MG, 1X/DAY 28 DAY USAGE, TWO WEEKS BREAK
     Dates: start: 20110802, end: 201111
  6. ACCUZIDE [Concomitant]
     Active Substance: HYDROCHLOROTHIAZIDE\QUINAPRIL HYDROCHLORIDE
     Indication: HYPERTENSION
     Dosage: 20MG/12.5MG DOSAGE FORM,DOSING INTERVAL AND FREQUENCY UNSPECIFIED, PREVIOUSLY DOUBLE DOSE SINCE 2007
     Route: 048
  7. CARDURA XL [Concomitant]
     Active Substance: DOXAZOSIN MESYLATE
     Indication: HYPERTENSION
     Dosage: 4 MG, UNK
     Route: 048

REACTIONS (16)
  - Hyperkeratosis [Recovered/Resolved]
  - Respiratory tract infection viral [Unknown]
  - Hypertension [Unknown]
  - Pain in extremity [Unknown]
  - Granulocytopenia [Recovered/Resolved]
  - Diarrhoea [Unknown]
  - Hyperaesthesia [Recovered/Resolved]
  - Fatigue [Recovered/Resolved]
  - Disease progression [Unknown]
  - Glossodynia [Recovered/Resolved]
  - Metastatic renal cell carcinoma [Unknown]
  - Anal fistula [Recovered/Resolved]
  - Leukopenia [Recovered/Resolved]
  - Thrombocytopenia [Recovered/Resolved]
  - Oral pain [Recovered/Resolved]
  - Decreased appetite [Unknown]

NARRATIVE: CASE EVENT DATE: 2011
